FAERS Safety Report 10194766 (Version 1)
Quarter: 2014Q2

REPORT INFORMATION
  Report Type: Spontaneous
  Country: US (occurrence: US)
  Receive Date: 20140526
  Receipt Date: 20140526
  Transmission Date: 20141212
  Serious: Yes (Life-Threatening, Hospitalization, Disabling)
  Sender: FDA-Public Use
  Company Number: US-009507513-1405USA010278

PATIENT
  Age: 29 Year
  Sex: Female
  Weight: 63.39 kg

DRUGS (3)
  1. NUVARING [Suspect]
     Indication: CONTRACEPTION
     Dosage: UNK
     Route: 067
     Dates: end: 2014
  2. METFORMIN [Concomitant]
     Dosage: 500 MG, BID
  3. TRICOR (FENOFIBRATE) [Concomitant]

REACTIONS (2)
  - Pulmonary embolism [Recovered/Resolved]
  - Respiratory tract infection [Recovered/Resolved]
